FAERS Safety Report 4718083-8 (Version None)
Quarter: 2005Q3

REPORT INFORMATION
  Report Type: 
  Country: None (occurrence: None)
  Receive Date: 20050720
  Receipt Date: 20050708
  Transmission Date: 20060218
  Serious: Yes (Death, Hospitalization)
  Sender: FDA-Public Use
  Company Number: GB-BRISTOL-MYERS SQUIBB COMPANY-13030689

PATIENT
  Age: 71 Year
  Sex: Male

DRUGS (4)
  1. CETUXIMAB [Suspect]
     Indication: COLORECTAL CANCER METASTATIC
     Dosage: INITIAL TX DATE: 09-MAY-05. STUDY DRUG DELAYED/OMITTED DUE TO EVENT.
     Route: 042
     Dates: start: 20050701, end: 20050701
  2. IRINOTECAN [Suspect]
     Indication: COLORECTAL CANCER METASTATIC
     Dosage: INITIAL TX DATE: 09-MAY-05.
     Route: 042
     Dates: start: 20050624, end: 20050624
  3. LOSEC [Concomitant]
  4. GLYCERYL TRINITRATE [Concomitant]

REACTIONS (4)
  - ANOREXIA [None]
  - CEREBROVASCULAR ACCIDENT [None]
  - FATIGUE [None]
  - PNEUMONIA [None]
